FAERS Safety Report 16057369 (Version 12)
Quarter: 2020Q2

REPORT INFORMATION
  Report Type: Spontaneous
  Country: US (occurrence: US)
  Receive Date: 20190311
  Receipt Date: 20200626
  Transmission Date: 20200713
  Serious: No
  Sender: FDA-Public Use
  Company Number: US-PFIZER INC-2019093974

PATIENT
  Age: 49 Year
  Sex: Male
  Weight: 75 kg

DRUGS (14)
  1. XELJANZ XR [Suspect]
     Active Substance: TOFACITINIB CITRATE
     Dosage: 11 MG, 1X/DAY
     Route: 048
     Dates: start: 201901, end: 202006
  2. SIMVASTATIN. [Concomitant]
     Active Substance: SIMVASTATIN
     Dosage: 20 MG, 1X/DAY, (EVERYDAY IN THE EVENING)
     Route: 048
  3. XELJANZ XR [Suspect]
     Active Substance: TOFACITINIB CITRATE
     Indication: RHEUMATOID ARTHRITIS
     Dosage: 11 MG, 1X/DAY
     Route: 048
     Dates: start: 20181226
  4. ARAVA [Concomitant]
     Active Substance: LEFLUNOMIDE
     Dosage: UNK [20 MG]
     Dates: start: 20190515
  5. IBUPROFEN. [Concomitant]
     Active Substance: IBUPROFEN
     Dosage: 800 MG, 3X/DAY
     Route: 048
     Dates: start: 20191031, end: 20191223
  6. XELJANZ XR [Suspect]
     Active Substance: TOFACITINIB CITRATE
     Dosage: 11 MG, 1X/DAY
     Route: 048
     Dates: start: 201902, end: 202006
  7. ARAVA [Concomitant]
     Active Substance: LEFLUNOMIDE
     Indication: RHEUMATOID ARTHRITIS
     Dosage: 10 MG, DAILY
     Route: 048
     Dates: start: 20191021, end: 20191223
  8. PAXIL [Concomitant]
     Active Substance: PAROXETINE HYDROCHLORIDE
     Indication: DEPRESSION
     Dosage: 20 MG, DAILY
     Dates: start: 20191021, end: 20191223
  9. XELJANZ XR [Suspect]
     Active Substance: TOFACITINIB CITRATE
     Dosage: 11 MG, 1X/DAY
     Dates: start: 20191021, end: 20191223
  10. SIMVASTATIN. [Concomitant]
     Active Substance: SIMVASTATIN
     Dosage: 10 MG, 1X/DAY, (TAKE 1 TABLET BY ORAL ROUTE EVERY DAY IN THE EVENING)
     Route: 048
     Dates: end: 20191223
  11. VITAMIN B12 [Concomitant]
     Active Substance: CYANOCOBALAMIN
     Dosage: 1000 UG, DAILY, (ONE DAILY)
     Route: 060
  12. PAPSID [Concomitant]
     Dosage: 20 MG, 3X/DAY, (WITH IBUPROFEN)
     Dates: start: 20191031, end: 20191223
  13. XELJANZ XR [Suspect]
     Active Substance: TOFACITINIB CITRATE
     Dosage: 11 MG, 1X/DAY
     Route: 048
     Dates: start: 201901
  14. AMITRIPTYLINE [Concomitant]
     Active Substance: AMITRIPTYLINE
     Indication: DEPRESSION
     Dosage: 50 MG, 1X/DAY, (TAKE 1 TABLET BY ORAL ROUTE EVERY DAY AT BEDTIME)
     Route: 048

REACTIONS (20)
  - Anxiety [Recovering/Resolving]
  - Malaise [Recovering/Resolving]
  - Back pain [Unknown]
  - Fatigue [Unknown]
  - Change of bowel habit [Unknown]
  - Depression [Recovering/Resolving]
  - Memory impairment [Recovering/Resolving]
  - Asthenia [Unknown]
  - Pyrexia [Unknown]
  - Gastric disorder [Unknown]
  - Sinusitis [Recovering/Resolving]
  - Condition aggravated [Not Recovered/Not Resolved]
  - Product dose omission [Unknown]
  - Influenza [Not Recovered/Not Resolved]
  - Upper-airway cough syndrome [Unknown]
  - Back disorder [Not Recovered/Not Resolved]
  - Abdominal discomfort [Unknown]
  - Allergic sinusitis [Recovered/Resolved]
  - Oropharyngeal pain [Unknown]
  - Cough [Not Recovered/Not Resolved]

NARRATIVE: CASE EVENT DATE: 2019
